FAERS Safety Report 6128899 (Version 2)
Quarter: 2014Q4

REPORT INFORMATION
  Report Type: Spontaneous
  Country: US (occurrence: US)
  Receive Date: 20060915
  Receipt Date: 20141015
  Transmission Date: 20150529
  Serious: Yes (Death, Hospitalization)
  Sender: FDA-Public Use
  Company Number: US-JNJFOC-20060902689

PATIENT
  Age: 32 Year
  Sex: Female

DRUGS (14)
  1. METAXALONE. [Suspect]
     Active Substance: METAXALONE
     Indication: SUICIDE ATTEMPT
     Dosage: 36-72 GRAMS
     Route: 048
  2. CYPROHEPATADINE HCL [Concomitant]
     Indication: PRODUCT USED FOR UNKNOWN INDICATION
  3. ESOMEPRAZOLE [Concomitant]
     Active Substance: ESOMEPRAZOLE
     Indication: PRODUCT USED FOR UNKNOWN INDICATION
  4. GABAPENTIN. [Concomitant]
     Active Substance: GABAPENTIN
     Indication: PRODUCT USED FOR UNKNOWN INDICATION
  5. TRAMADOL [Suspect]
     Active Substance: TRAMADOL
     Indication: SUICIDE ATTEMPT
     Route: 048
  6. VENLAFAXINE [Suspect]
     Active Substance: VENLAFAXINE HYDROCHLORIDE
     Indication: SUICIDE ATTEMPT
     Route: 048
  7. FAST ACTING ACETAMINOPHEN [Suspect]
     Active Substance: ACETAMINOPHEN
     Indication: SUICIDE ATTEMPT
     Route: 048
  8. QUETIAPINE [Suspect]
     Active Substance: QUETIAPINE
     Indication: SUICIDE ATTEMPT
     Route: 048
  9. ETHANOL [Concomitant]
     Active Substance: ALCOHOL
     Indication: PRODUCT USED FOR UNKNOWN INDICATION
     Route: 048
  10. FAST ACTING ACETAMINOPHEN [Suspect]
     Active Substance: ACETAMINOPHEN
     Route: 048
  11. TOPIRAMATE. [Concomitant]
     Active Substance: TOPIRAMATE
     Indication: PRODUCT USED FOR UNKNOWN INDICATION
  12. MAGNESIUM [Concomitant]
     Active Substance: MAGNESIUM
     Indication: PRODUCT USED FOR UNKNOWN INDICATION
  13. COLESTIPOL [Concomitant]
     Active Substance: COLESTIPOL
     Indication: PRODUCT USED FOR UNKNOWN INDICATION
  14. SUCRALFATE. [Concomitant]
     Active Substance: SUCRALFATE
     Indication: PRODUCT USED FOR UNKNOWN INDICATION

REACTIONS (12)
  - Alanine aminotransferase increased [None]
  - Overdose [Fatal]
  - Seizure [Recovering/Resolving]
  - Hepatic function abnormal [Fatal]
  - Aspartate aminotransferase increased [None]
  - Acidosis [Fatal]
  - Areflexia [None]
  - Completed suicide [Fatal]
  - Hypotension [Fatal]
  - Tachycardia [None]
  - Pupil fixed [None]
  - International normalised ratio increased [None]
